FAERS Safety Report 12980466 (Version 1)
Quarter: 2016Q4

REPORT INFORMATION
  Report Type: Spontaneous
  Country: JP (occurrence: JP)
  Receive Date: 20161128
  Receipt Date: 20161128
  Transmission Date: 20170207
  Serious: Yes (Death, Hospitalization, Other)
  Sender: FDA-Public Use
  Company Number: JP-ASTELLAS-2016US020783

PATIENT
  Age: 62 Year
  Sex: Female

DRUGS (2)
  1. TARCEVA [Suspect]
     Active Substance: ERLOTINIB HYDROCHLORIDE
     Route: 048
     Dates: start: 201603, end: 2016
  2. TARCEVA [Suspect]
     Active Substance: ERLOTINIB HYDROCHLORIDE
     Indication: LUNG ADENOCARCINOMA
     Route: 048
     Dates: start: 2015, end: 20160302

REACTIONS (5)
  - Henoch-Schonlein purpura [Recovered/Resolved]
  - Metastases to central nervous system [Unknown]
  - Diarrhoea [Unknown]
  - Ileus [Fatal]
  - Thermal burn [Recovering/Resolving]

NARRATIVE: CASE EVENT DATE: 20160302
